FAERS Safety Report 7736240-3 (Version None)
Quarter: 2011Q3

REPORT INFORMATION
  Report Type: 
  Country: None (occurrence: None)
  Receive Date: 20110908
  Receipt Date: 20110831
  Transmission Date: 20111222
  Serious: Yes (Other)
  Sender: FDA-Public Use
  Company Number: JP-ASTELLAS-2011JP005801

PATIENT
  Sex: Male

DRUGS (10)
  1. PROTOPIC [Suspect]
     Dosage: UNK
     Route: 061
     Dates: start: 20011122, end: 20090522
  2. STEROID [Concomitant]
     Indication: NEURODERMATITIS
     Route: 061
  3. RINDERON-VG [Suspect]
     Indication: PRURIGO
     Dosage: UNK
     Route: 061
     Dates: start: 19950921
  4. PETROLATUM WHITE [Concomitant]
     Dosage: UNK
     Route: 061
     Dates: start: 19961108
  5. ATARAX [Concomitant]
     Indication: PRURITUS
     Dosage: 25 MG, UID/QD
     Route: 048
     Dates: start: 19950228
  6. INSULIN [Concomitant]
     Indication: DIABETES MELLITUS
     Route: 065
  7. CLEMASTINE FUMARATE [Concomitant]
     Indication: PRURITUS
     Dosage: 1 MG, TID
     Route: 048
     Dates: start: 19951005
  8. DIFLAL [Concomitant]
     Indication: PRURIGO
     Dosage: UNK
     Route: 061
     Dates: start: 19910910, end: 20090522
  9. LIDOMEX [Suspect]
     Indication: PRURIGO
     Dosage: UNK
     Route: 061
     Dates: start: 20050803, end: 20090215
  10. RIZABEN [Concomitant]
     Indication: PRURITUS
     Dosage: 100 MG, TID
     Route: 048
     Dates: start: 19950228

REACTIONS (2)
  - INTENTIONAL DRUG MISUSE [None]
  - PYODERMA [None]
